FAERS Safety Report 10528922 (Version 1)
Quarter: 2014Q4

REPORT INFORMATION
  Report Type: Spontaneous
  Country: US (occurrence: None)
  Receive Date: 20141016
  Receipt Date: 20141016
  Transmission Date: 20150528
  Serious: Yes (Other)
  Sender: FDA-Public Use
  Company Number: None

PATIENT
  Age: 58 Year
  Sex: Male
  Weight: 89.7 kg

DRUGS (1)
  1. MIRTAZAPINE. [Suspect]
     Active Substance: MIRTAZAPINE
     Indication: DEPRESSION
     Dosage: MG PO
     Route: 048
     Dates: start: 20140702, end: 20140707

REACTIONS (3)
  - Suicidal ideation [None]
  - Nightmare [None]
  - Delirium [None]

NARRATIVE: CASE EVENT DATE: 20140706
